FAERS Safety Report 26209250 (Version 1)
Quarter: 2025Q4

REPORT INFORMATION
  Report Type: Spontaneous
  Country: US (occurrence: US)
  Receive Date: 20251229
  Receipt Date: 20251229
  Transmission Date: 20260118
  Serious: No
  Sender: SANOFI AVENTIS
  Company Number: US-SA-2025SA386755

PATIENT
  Sex: Male

DRUGS (4)
  1. DUPIXENT [Suspect]
     Active Substance: DUPILUMAB
     Indication: Dermatitis allergic
     Dosage: 300 MG, QOW
     Route: 058
     Dates: start: 20180531
  2. CLOBETASOL [Concomitant]
     Active Substance: CLOBETASOL
  3. METRONIDAZOLE [Concomitant]
     Active Substance: METRONIDAZOLE
  4. ZYRTEC [Concomitant]
     Active Substance: CETIRIZINE HYDROCHLORIDE

REACTIONS (3)
  - Discomfort [Unknown]
  - Rash [Unknown]
  - Drug ineffective [Unknown]
